FAERS Safety Report 6485246-3 (Version None)
Quarter: 2009Q4

REPORT INFORMATION
  Report Type: 
  Country: None (occurrence: None)
  Receive Date: 20091209
  Receipt Date: 20090618
  Transmission Date: 20100525
  Serious: No
  Sender: FDA-Public Use
  Company Number: US-AMGEN-KDL352163

PATIENT
  Sex: Male

DRUGS (4)
  1. ENBREL [Suspect]
     Indication: RHEUMATOID ARTHRITIS
     Route: 058
     Dates: start: 20060521
  2. ARTHROTEC [Concomitant]
     Dates: start: 20050105
  3. PAXIL [Concomitant]
  4. ALLOPURINOL [Concomitant]
     Dates: start: 20020301

REACTIONS (8)
  - DECREASED ACTIVITY [None]
  - HOT FLUSH [None]
  - HYPERHIDROSIS [None]
  - JOINT STIFFNESS [None]
  - PAIN [None]
  - RHEUMATOID ARTHRITIS [None]
  - RHEUMATOID NODULE [None]
  - SLEEP APNOEA SYNDROME [None]
